FAERS Safety Report 10250666 (Version 1)
Quarter: 2014Q2

REPORT INFORMATION
  Report Type: Spontaneous
  Country: IT (occurrence: IT)
  Receive Date: 20140620
  Receipt Date: 20140620
  Transmission Date: 20141212
  Serious: Yes (Other)
  Sender: FDA-Public Use
  Company Number: IT-GLAXOSMITHKLINE-B1005520A

PATIENT
  Age: 46 Year
  Sex: Female

DRUGS (2)
  1. TYVERB [Suspect]
     Indication: BREAST CANCER METASTATIC
     Dosage: 1250MG PER DAY
     Route: 048
     Dates: start: 20140227, end: 20140305
  2. CAPECITABINE [Suspect]
     Indication: BREAST CANCER METASTATIC
     Dosage: 2000MG PER DAY
     Route: 048
     Dates: start: 20140227, end: 20140305

REACTIONS (5)
  - Asthenia [Unknown]
  - Diarrhoea [Unknown]
  - Vomiting [Unknown]
  - Stomatitis [Unknown]
  - Mucosal inflammation [Unknown]
